FAERS Safety Report 18730616 (Version 1)
Quarter: 2021Q1

REPORT INFORMATION
  Report Type: Spontaneous
  Country: US (occurrence: US)
  Receive Date: 20210112
  Receipt Date: 20210112
  Transmission Date: 20210419
  Serious: No
  Sender: FDA-Public Use
  Company Number: None

PATIENT
  Age: 61 Year
  Sex: Female

DRUGS (2)
  1. LETAIRIS [Suspect]
     Active Substance: AMBRISENTAN
  2. ADCIRCA [Suspect]
     Active Substance: TADALAFIL

REACTIONS (4)
  - Insurance issue [None]
  - Therapy interrupted [None]
  - Economic problem [None]
  - Dyspnoea [None]

NARRATIVE: CASE EVENT DATE: 20210112
